FAERS Safety Report 10095984 (Version 2)
Quarter: 2014Q2

REPORT INFORMATION
  Report Type: Spontaneous
  Country: US (occurrence: US)
  Receive Date: 20140422
  Receipt Date: 20140422
  Transmission Date: 20141212
  Serious: No
  Sender: FDA-Public Use
  Company Number: US-GILEAD-2013-0075206

PATIENT
  Sex: Female

DRUGS (2)
  1. LETAIRIS [Suspect]
     Indication: PULMONARY HYPERTENSION
     Dosage: 5 MG, QD
     Dates: start: 20130508
  2. LETAIRIS [Suspect]
     Indication: CARDIAC VALVE DISEASE

REACTIONS (7)
  - Cough [Unknown]
  - Exercise tolerance decreased [Unknown]
  - Unevaluable event [Unknown]
  - Iron deficiency anaemia [Unknown]
  - Dyspnoea [Unknown]
  - Dizziness [Unknown]
  - Fatigue [Unknown]
